FAERS Safety Report 16944632 (Version 1)
Quarter: 2019Q4

REPORT INFORMATION
  Report Type: Spontaneous
  Country: GB (occurrence: GB)
  Receive Date: 20191022
  Receipt Date: 20191022
  Transmission Date: 20200122
  Serious: Yes (Other)
  Sender: FDA-Public Use
  Company Number: GB-ACTELION-A-CH2019-197104

PATIENT
  Age: 28 Year
  Sex: Female

DRUGS (5)
  1. RANITIDINE. [Concomitant]
     Active Substance: RANITIDINE
  2. FUROSEMIDE. [Concomitant]
     Active Substance: FUROSEMIDE
  3. OPSUMIT [Suspect]
     Active Substance: MACITENTAN
     Indication: PRODUCT USED FOR UNKNOWN INDICATION
     Route: 048
  4. COCODAMOL [Concomitant]
     Active Substance: ACETAMINOPHEN\CODEINE PHOSPHATE
     Dosage: 8/500MG
  5. ACETYLSALICYLIC ACID [Concomitant]
     Active Substance: ASPIRIN

REACTIONS (2)
  - Migraine [Recovered/Resolved]
  - Abdominal discomfort [Recovered/Resolved]
